FAERS Safety Report 10260618 (Version 40)
Quarter: 2017Q2

REPORT INFORMATION
  Report Type: Report from Study
  Country: CA (occurrence: CA)
  Receive Date: 20140626
  Receipt Date: 20170531
  Transmission Date: 20170829
  Serious: Yes (Other)
  Sender: FDA-Public Use
  Company Number: CA-ROCHE-1109758

PATIENT
  Age: 67 Year
  Sex: Female
  Weight: 55.1 kg

DRUGS (18)
  1. RITUXAN [Suspect]
     Active Substance: RITUXIMAB
     Indication: RHEUMATOID ARTHRITIS
     Route: 042
     Dates: start: 20090709, end: 20110107
  2. TYLENOL [Concomitant]
     Active Substance: ACETAMINOPHEN
     Route: 048
     Dates: start: 20090709, end: 20110107
  3. BENADRYL [Concomitant]
     Active Substance: DIPHENHYDRAMINE HYDROCHLORIDE
     Route: 048
     Dates: start: 20090709, end: 20110107
  4. METHOTREXATE. [Concomitant]
     Active Substance: METHOTREXATE
  5. SOLU-MEDROL [Concomitant]
     Active Substance: METHYLPREDNISOLONE SODIUM SUCCINATE
     Route: 065
     Dates: start: 20090709, end: 20110107
  6. RANITIDINE. [Concomitant]
     Active Substance: RANITIDINE
  7. ACTEMRA [Suspect]
     Active Substance: TOCILIZUMAB
     Indication: RHEUMATOID ARTHRITIS
     Route: 042
     Dates: start: 20120202, end: 20170512
  8. PREDNISONE. [Concomitant]
     Active Substance: PREDNISONE
  9. METFORMIN [Concomitant]
     Active Substance: METFORMIN HYDROCHLORIDE
  10. ACTEMRA [Suspect]
     Active Substance: TOCILIZUMAB
     Route: 042
     Dates: start: 20160415
  11. FOLIC ACID. [Concomitant]
     Active Substance: FOLIC ACID
  12. SYNTHROID [Concomitant]
     Active Substance: LEVOTHYROXINE SODIUM
  13. ACTEMRA [Suspect]
     Active Substance: TOCILIZUMAB
     Route: 042
     Dates: start: 20150321
  14. ACTEMRA [Suspect]
     Active Substance: TOCILIZUMAB
     Route: 042
     Dates: start: 20160512
  15. CELEBREX [Concomitant]
     Active Substance: CELECOXIB
  16. MEVACOR [Concomitant]
     Active Substance: LOVASTATIN
  17. ACTEMRA [Suspect]
     Active Substance: TOCILIZUMAB
     Route: 042
  18. OXYCOCET [Concomitant]
     Active Substance: ACETAMINOPHEN\OXYCODONE HYDROCHLORIDE

REACTIONS (35)
  - Fatigue [Unknown]
  - Headache [Not Recovered/Not Resolved]
  - Dry skin [Unknown]
  - Blood pressure systolic increased [Unknown]
  - Pneumonia [Unknown]
  - Joint warmth [Not Recovered/Not Resolved]
  - Poor venous access [Unknown]
  - Weight decreased [Recovering/Resolving]
  - Blood urine present [Unknown]
  - Impaired healing [Not Recovered/Not Resolved]
  - Wound [Recovered/Resolved]
  - Weight increased [Unknown]
  - Blister [Unknown]
  - Pyrexia [Unknown]
  - Infusion related reaction [Unknown]
  - Skin fissures [Unknown]
  - Heart rate decreased [Unknown]
  - Localised infection [Unknown]
  - Hypotension [Not Recovered/Not Resolved]
  - Anaemia [Unknown]
  - Diarrhoea [Not Recovered/Not Resolved]
  - Sneezing [Not Recovered/Not Resolved]
  - Lower respiratory tract infection [Not Recovered/Not Resolved]
  - Weight increased [Recovered/Resolved]
  - Viral upper respiratory tract infection [Recovered/Resolved]
  - Joint swelling [Not Recovered/Not Resolved]
  - Aphthous ulcer [Recovering/Resolving]
  - Arthritis infective [Not Recovered/Not Resolved]
  - Oropharyngeal pain [Recovered/Resolved]
  - Drug ineffective [Unknown]
  - Blood pressure increased [Unknown]
  - Chills [Not Recovered/Not Resolved]
  - Cough [Not Recovered/Not Resolved]
  - Body temperature decreased [Unknown]
  - Blood pressure systolic abnormal [Unknown]

NARRATIVE: CASE EVENT DATE: 20120824
